FAERS Safety Report 11977319 (Version 2)
Quarter: 2016Q1

REPORT INFORMATION
  Report Type: Report from Study
  Country: AU (occurrence: AU)
  Receive Date: 20160129
  Receipt Date: 20160217
  Transmission Date: 20160526
  Serious: Yes (Hospitalization)
  Sender: FDA-Public Use
  Company Number: AU-INCYTE CORPORATION-2015IN004158

PATIENT
  Age: 47 Year
  Sex: Female

DRUGS (2)
  1. JAKAFI [Suspect]
     Active Substance: RUXOLITINIB
     Dosage: 5 MG, BID
     Route: 048
     Dates: start: 20120319
  2. JAKAFI [Suspect]
     Active Substance: RUXOLITINIB
     Indication: MYELOFIBROSIS
     Dosage: 10 MG, BID
     Route: 048
     Dates: start: 20120319

REACTIONS (11)
  - Infection [Unknown]
  - Haematocrit decreased [Unknown]
  - Blood cholesterol increased [Unknown]
  - Neutrophil count decreased [Unknown]
  - Red blood cell count decreased [Unknown]
  - White blood cell count decreased [Unknown]
  - Haemoglobin decreased [Unknown]
  - Platelet count decreased [Unknown]
  - Blood lactate dehydrogenase increased [Unknown]
  - Anion gap decreased [Unknown]
  - Nucleated red cells [Unknown]

NARRATIVE: CASE EVENT DATE: 20150814
